FAERS Safety Report 18968264 (Version 7)
Quarter: 2022Q1

REPORT INFORMATION
  Report Type: Report from Study
  Country: AR (occurrence: AR)
  Receive Date: 20210304
  Receipt Date: 20220207
  Transmission Date: 20220424
  Serious: Yes (Hospitalization, Other)
  Sender: FDA-Public Use
  Company Number: NVSC2021AR048175

PATIENT
  Age: 59 Year
  Sex: Female

DRUGS (1)
  1. COSENTYX [Suspect]
     Active Substance: SECUKINUMAB
     Indication: Psoriatic arthropathy
     Dosage: 300 MG, QMO
     Route: 058
     Dates: start: 20171116, end: 202101

REACTIONS (3)
  - Appendicitis [Not Recovered/Not Resolved]
  - Breast cancer [Unknown]
  - Fatigue [Unknown]

NARRATIVE: CASE EVENT DATE: 20201201
